FAERS Safety Report 4405196-3 (Version None)
Quarter: 2004Q3

REPORT INFORMATION
  Report Type: 
  Country: None (occurrence: None)
  Receive Date: 20040723
  Receipt Date: 20040716
  Transmission Date: 20050211
  Serious: Yes (Hospitalization)
  Sender: FDA-Public Use
  Company Number: 200411673DE

PATIENT
  Age: 54 Year
  Sex: Male

DRUGS (16)
  1. DOCETAXEL [Suspect]
     Indication: NON-SMALL CELL LUNG CANCER
     Route: 042
     Dates: start: 20040609, end: 20040609
  2. CISPLATIN [Suspect]
     Indication: NON-SMALL CELL LUNG CANCER
     Route: 042
     Dates: start: 20040609, end: 20040609
  3. DULCOLAX [Concomitant]
     Indication: ANXIETY
  4. DULCOLAX [Concomitant]
     Indication: CONSTIPATION
  5. BROMAZEPAM [Concomitant]
     Indication: RESTLESSNESS
     Route: 048
     Dates: start: 20040301, end: 20040607
  6. CAPTOPRIL [Concomitant]
     Indication: HYPERTENSION
     Route: 048
     Dates: start: 20040101
  7. PANTOPRAZOL [Concomitant]
     Route: 048
     Dates: start: 20040517, end: 20040519
  8. ALLOPURINOL [Concomitant]
     Indication: HYPERURICAEMIA
     Route: 048
     Dates: start: 20040517
  9. DEXAMETHASONE [Concomitant]
     Route: 048
     Dates: start: 20040517, end: 20040610
  10. SAB SIMPLEX [Concomitant]
     Indication: FLATULENCE
     Route: 048
     Dates: start: 20040518, end: 20040519
  11. OMEPRAZOLE [Concomitant]
     Indication: ANXIETY
     Route: 048
     Dates: start: 20040520, end: 20040607
  12. CAPTOPRIL [Concomitant]
     Route: 048
     Dates: start: 20040101
  13. NORMOC [Concomitant]
     Indication: RESTLESSNESS
     Route: 048
     Dates: start: 20040608, end: 20040608
  14. NORVASC [Concomitant]
     Indication: HYPERTENSION
     Route: 048
     Dates: start: 20040609
  15. EBRANTIL [Concomitant]
     Indication: HYPERTENSION
     Route: 048
     Dates: start: 20040609, end: 20040609
  16. LASIX [Concomitant]
     Route: 042
     Dates: start: 20040609, end: 20040609

REACTIONS (5)
  - PLEURAL DISORDER [None]
  - POST PROCEDURAL COMPLICATION [None]
  - POST PROCEDURAL FISTULA [None]
  - WOUND DEHISCENCE [None]
  - WOUND SECRETION [None]
